FAERS Safety Report 23517951 (Version 2)
Quarter: 2024Q1

REPORT INFORMATION
  Report Type: Report from Study
  Country: CL (occurrence: CL)
  Receive Date: 20240213
  Receipt Date: 20240307
  Transmission Date: 20240410
  Serious: Yes (Hospitalization, Other)
  Sender: FDA-Public Use
  Company Number: CL-JNJFOC-20240224613

PATIENT
  Age: 64 Year
  Sex: Male

DRUGS (1)
  1. SIMPONI [Suspect]
     Active Substance: GOLIMUMAB
     Indication: Rheumatoid arthritis
     Dosage: LAST DRUG APPLICATION: 28-DEC-2023
     Route: 058
     Dates: start: 20231123

REACTIONS (4)
  - Large intestinal ulcer [Unknown]
  - Bacterial infection [Unknown]
  - Diverticulum [Unknown]
  - Immune system disorder [Unknown]

NARRATIVE: CASE EVENT DATE: 20240101
